FAERS Safety Report 12691672 (Version 3)
Quarter: 2017Q1

REPORT INFORMATION
  Report Type: Report from Study
  Country: AU (occurrence: AU)
  Receive Date: 20160826
  Receipt Date: 20170227
  Transmission Date: 20170428
  Serious: Yes (Hospitalization, Other)
  Sender: FDA-Public Use
  Company Number: AU-REGENERON PHARMACEUTICALS, INC.-2016-20954

PATIENT

DRUGS (2)
  1. EYLEA [Suspect]
     Active Substance: AFLIBERCEPT
     Indication: NEOVASCULAR AGE-RELATED MACULAR DEGENERATION
     Dosage: 2 MG, UNK
     Route: 031
     Dates: start: 20140110
  2. VENTOLIN [Suspect]
     Active Substance: ALBUTEROL SULFATE
     Indication: PRODUCT USED FOR UNKNOWN INDICATION
     Dosage: UNK
     Dates: start: 201605

REACTIONS (14)
  - Influenza like illness [Unknown]
  - Biliary colic [Unknown]
  - Adverse drug reaction [Unknown]
  - Asthma [Unknown]
  - Lung infection [Unknown]
  - Thyroid mass [Unknown]
  - Dyspnoea [Unknown]
  - Pain [Unknown]
  - Interstitial lung disease [Unknown]
  - Pancreatitis [Unknown]
  - Influenza [Unknown]
  - Malaise [Unknown]
  - Upper respiratory tract infection [Unknown]
  - Cholangitis [Unknown]

NARRATIVE: CASE EVENT DATE: 2015
